FAERS Safety Report 16174852 (Version 1)
Quarter: 2019Q2

REPORT INFORMATION
  Report Type: Spontaneous
  Country: US (occurrence: US)
  Receive Date: 20190307
  Receipt Date: 20190307
  Transmission Date: 20190711
  Serious: Yes (Hospitalization)
  Sender: FDA-Public Use
  Company Number: None

PATIENT
  Age: 69 Year
  Sex: Female

DRUGS (4)
  1. LETROZOLE. [Concomitant]
     Active Substance: LETROZOLE
  2. SPIRONOLACTONE. [Concomitant]
     Active Substance: SPIRONOLACTONE
  3. IBRANCE [Suspect]
     Active Substance: PALBOCICLIB
     Dosage: DATES OF USE 11/20/2019 - PRESENT
  4. LOVASTATIN. [Suspect]
     Active Substance: LOVASTATIN

REACTIONS (1)
  - Kidney infection [None]

NARRATIVE: CASE EVENT DATE: 20190220
